FAERS Safety Report 21124597 (Version 1)
Quarter: 2022Q3

REPORT INFORMATION
  Report Type: Spontaneous
  Country: CZ (occurrence: CZ)
  Receive Date: 20220725
  Receipt Date: 20220725
  Transmission Date: 20221026
  Serious: Yes (Hospitalization)
  Sender: FDA-Public Use
  Company Number: CZ-NOVOPROD-939820

PATIENT
  Age: 18 Year

DRUGS (6)
  1. ESTRADIOL HEMIHYDRATE [Suspect]
     Active Substance: ESTRADIOL HEMIHYDRATE
     Indication: Hormone replacement therapy
     Dosage: 1 MG, BID (EVERY 12 HOURS)(LAST THREE MONTHS)
     Route: 060
  2. ESTRADIOL HEMIHYDRATE [Suspect]
     Active Substance: ESTRADIOL HEMIHYDRATE
     Indication: Hormone replacement therapy
     Dosage: 2 MG, QD
     Route: 048
  3. CYPROTERONE ACETATE [Suspect]
     Active Substance: CYPROTERONE ACETATE
     Indication: Hormone replacement therapy
     Dosage: 25 MG, QD (HALF TABLET OF 50 MG IN THE EVENING)
     Route: 048
  4. PANTOPRAZOLE SODIUM [Concomitant]
     Active Substance: PANTOPRAZOLE SODIUM
     Indication: Product used for unknown indication
     Dosage: 40 MG, QD (IN MORNING ON EMPTY STOMACH)
     Route: 048
  5. CEZERA [LEVOCETIRIZINE DIHYDROCHLORIDE] [Concomitant]
     Indication: Product used for unknown indication
     Dosage: 5 MG, BID (EVERY 12 HOURS)
  6. BISULEPIN [Concomitant]
     Active Substance: BISULEPIN
     Indication: Product used for unknown indication
     Dosage: 2 MG, QD (AT NIGHT)

REACTIONS (5)
  - Erythema annulare [Recovered/Resolved]
  - Abdominal pain upper [Recovered/Resolved]
  - Headache [Unknown]
  - Off label use [Unknown]
  - Incorrect route of product administration [Unknown]

NARRATIVE: CASE EVENT DATE: 20200501
